FAERS Safety Report 17019934 (Version 1)
Quarter: 2019Q4

REPORT INFORMATION
  Report Type: Spontaneous
  Country: US (occurrence: US)
  Receive Date: 20191004
  Receipt Date: 20191004
  Transmission Date: 20200122
  Serious: Yes (Hospitalization)
  Sender: FDA-Public Use
  Company Number: None

PATIENT
  Age: 13 Year
  Sex: Female
  Weight: 54.3 kg

DRUGS (4)
  1. VINCRISTINE [Suspect]
     Active Substance: VINCRISTINE
     Dates: start: 20181218
  2. METHOTREXATE. [Suspect]
     Active Substance: METHOTREXATE
     Dates: start: 20181218
  3. MERCAPTOPURINE. [Suspect]
     Active Substance: MERCAPTOPURINE
     Dates: start: 20181218
  4. DEXAMETHASONE. [Suspect]
     Active Substance: DEXAMETHASONE
     Dates: start: 20181218

REACTIONS (11)
  - Aspartate aminotransferase increased [None]
  - Alanine aminotransferase increased [None]
  - Blood bilirubin increased [None]
  - Pancreatitis [None]
  - Bilirubin conjugated increased [None]
  - Inadequate analgesia [None]
  - Urticaria [None]
  - Therapy cessation [None]
  - Thrombocytopenia [None]
  - Pruritus [None]
  - Transfusion reaction [None]

NARRATIVE: CASE EVENT DATE: 20190828
